FAERS Safety Report 16741998 (Version 1)
Quarter: 2019Q3

REPORT INFORMATION
  Report Type: Spontaneous
  Country: GB (occurrence: GB)
  Receive Date: 20190826
  Receipt Date: 20190826
  Transmission Date: 20191005
  Serious: Yes (Hospitalization, Disabling, Other)
  Sender: FDA-Public Use
  Company Number: GB-TEVA-2019-GB-1096431

PATIENT
  Age: 40 Year
  Sex: Female
  Weight: 66.22 kg

DRUGS (1)
  1. NITROFURANTOIN. [Suspect]
     Active Substance: NITROFURANTOIN
     Indication: CYSTITIS
     Route: 048
     Dates: start: 20190125, end: 20190127

REACTIONS (6)
  - Muscle tightness [Recovering/Resolving]
  - Loss of control of legs [Recovering/Resolving]
  - Paraesthesia [Recovering/Resolving]
  - Hypokinesia [Recovering/Resolving]
  - Hypoaesthesia [Recovering/Resolving]
  - Nerve injury [Recovering/Resolving]

NARRATIVE: CASE EVENT DATE: 20190126
